FAERS Safety Report 7576632-9 (Version None)
Quarter: 2011Q2

REPORT INFORMATION
  Report Type: 
  Country: None (occurrence: None)
  Receive Date: 20110628
  Receipt Date: 20110622
  Transmission Date: 20111010
  Serious: Yes (Hospitalization, Other)
  Sender: FDA-Public Use
  Company Number: US-ELI_LILLY_AND_COMPANY-US200908005976

PATIENT
  Age: 59 Year
  Sex: Male
  Weight: 134.69 kg

DRUGS (21)
  1. LASIX [Concomitant]
     Indication: CARDIAC FAILURE CONGESTIVE
     Dosage: 40 MG, 2/D
     Dates: start: 19990101
  2. METFORMIN HCL [Concomitant]
     Indication: TYPE 2 DIABETES MELLITUS
     Dosage: 1000 MG, 2/D
     Dates: start: 20020101
  3. ATENOLOL [Concomitant]
     Indication: HYPERTENSION
     Dosage: 25 MG, 2/D
     Dates: start: 20060101
  4. NIASPAN [Concomitant]
     Dosage: 500 MG, EACH EVENING
  5. NORVASC [Concomitant]
     Indication: HYPERTENSION
     Dates: start: 19990101
  6. HUMALOG [Concomitant]
     Indication: TYPE 2 DIABETES MELLITUS
     Dosage: 15 U, 3/D
     Dates: start: 20060101
  7. GLYBURIDE [Concomitant]
     Indication: TYPE 2 DIABETES MELLITUS
     Dosage: 2.5 MG, DAILY (1/D)
     Dates: start: 19970101
  8. ZAROXOLYN [Concomitant]
     Indication: HYPERTENSION
     Dosage: 5 MG, 2/D
     Dates: start: 20050101
  9. COUMADIN [Concomitant]
     Dosage: 7.5 MG, DAILY (1/D)
  10. POTASSIUM [Concomitant]
  11. BYETTA [Suspect]
     Dosage: 10 UG, 2/D
     Dates: start: 20060501, end: 20061001
  12. LANTUS [Concomitant]
     Indication: TYPE 2 DIABETES MELLITUS
     Dosage: 16 U, EACH EVENING
     Dates: start: 20060101
  13. ACTOS [Concomitant]
     Indication: TYPE 2 DIABETES MELLITUS
     Dosage: 45 MG, DAILY (1/D)
     Dates: start: 20000101
  14. LYRICA [Concomitant]
     Dosage: 75 MG, 2/D
  15. INSULIN [Concomitant]
  16. ZOLOFT [Concomitant]
     Indication: DEPRESSION
     Dosage: 50 MG, DAILY (1/D)
     Dates: start: 20070101
  17. PLAVIX [Concomitant]
     Dosage: 75 MG, DAILY (1/D)
  18. GLUCOPHAGE [Concomitant]
     Dosage: 1000 MG, BID
  19. ZOCOR [Concomitant]
     Dosage: 10 MG, EACH EVENING
     Dates: start: 20060101
  20. RELAFEN [Concomitant]
     Indication: ARTHRALGIA
     Dosage: 500 MG, DAILY (1/D)
  21. FUROSEMIDE [Concomitant]
     Dosage: 40 MG, QD

REACTIONS (2)
  - PANCREATITIS ACUTE [None]
  - OFF LABEL USE [None]
